FAERS Safety Report 26073138 (Version 1)
Quarter: 2025Q4

REPORT INFORMATION
  Report Type: Report from Study
  Country: US (occurrence: US)
  Receive Date: 20251121
  Receipt Date: 20251121
  Transmission Date: 20260118
  Serious: No
  Sender: ACADIA PHARMACEUTICALS
  Company Number: US-ACADIA PHARMACEUTICALS INC.-ACA-2025-PIM-012372

PATIENT
  Sex: Male

DRUGS (15)
  1. NUPLAZID [Suspect]
     Active Substance: PIMAVANSERIN TARTRATE
     Indication: Parkinson^s disease
     Dosage: 34 MILLIGRAM, QD
     Route: 048
     Dates: start: 20190122
  2. AMLODIPINE [Concomitant]
     Active Substance: AMLODIPINE BESYLATE
  3. CILOSTAZOL [Concomitant]
     Active Substance: CILOSTAZOL
  4. CLONIDINE [Concomitant]
     Active Substance: CLONIDINE
  5. CRESTOR [Concomitant]
     Active Substance: ROSUVASTATIN CALCIUM
  6. KEPPRA [Concomitant]
     Active Substance: LEVETIRACETAM
  7. LABETALOL [Concomitant]
     Active Substance: LABETALOL
  8. LEVEMIR [Concomitant]
     Active Substance: INSULIN DETEMIR
  9. LORTAB [Concomitant]
     Active Substance: ACETAMINOPHEN\HYDROCODONE BITARTRATE
  10. NOVOLOG [Concomitant]
     Active Substance: INSULIN ASPART
  11. RENVELA [Concomitant]
     Active Substance: SEVELAMER CARBONATE
  12. ROCALTROL [Concomitant]
     Active Substance: CALCITRIOL
  13. SODIUM BICARBONATE [Concomitant]
     Active Substance: SODIUM BICARBONATE
  14. VELTASSA [Concomitant]
     Active Substance: PATIROMER
  15. ZANAFLEX [Concomitant]
     Active Substance: TIZANIDINE HYDROCHLORIDE

REACTIONS (1)
  - Product dose omission issue [Not Recovered/Not Resolved]
